FAERS Safety Report 15356587 (Version 2)
Quarter: 2018Q4

REPORT INFORMATION
  Report Type: Report from Study
  Country: US (occurrence: US)
  Receive Date: 20180906
  Receipt Date: 20181116
  Transmission Date: 20190204
  Serious: No
  Sender: FDA-Public Use
  Company Number: PHEH2018US036141

PATIENT
  Sex: Male

DRUGS (1)
  1. COSENTYX [Suspect]
     Active Substance: SECUKINUMAB
     Indication: PRODUCT USED FOR UNKNOWN INDICATION
     Route: 058

REACTIONS (4)
  - Nasopharyngitis [Unknown]
  - Oropharyngeal pain [Unknown]
  - Drug effect incomplete [Unknown]
  - Throat irritation [Unknown]
